FAERS Safety Report 4404549-7 (Version None)
Quarter: 2004Q3

REPORT INFORMATION
  Report Type: 
  Country: None (occurrence: None)
  Receive Date: 20040722
  Receipt Date: 20040715
  Transmission Date: 20050211
  Serious: Yes (Other)
  Sender: FDA-Public Use
  Company Number: CZ-ROCHE-374452

PATIENT
  Age: 57 Year
  Sex: Female

DRUGS (1)
  1. ROFERON-A [Suspect]
     Indication: MALIGNANT MELANOMA
     Route: 030
     Dates: start: 20030115, end: 20040505

REACTIONS (1)
  - PORPHYRIA NON-ACUTE [None]
